FAERS Safety Report 13634788 (Version 1)
Quarter: 2017Q2

REPORT INFORMATION
  Report Type: Spontaneous
  Country: US (occurrence: US)
  Receive Date: 20170531
  Receipt Date: 20170531
  Transmission Date: 20170830
  Serious: No
  Sender: FDA-Public Use
  Company Number: US-ASTELLAS-1657004

PATIENT
  Age: 64 Year
  Sex: Male

DRUGS (12)
  1. ONDANSETRON [Concomitant]
     Active Substance: ONDANSETRON
     Route: 065
     Dates: start: 20151104
  2. TARCEVA [Suspect]
     Active Substance: ERLOTINIB HYDROCHLORIDE
     Indication: METASTATIC NEOPLASM
     Route: 048
     Dates: start: 201510
  3. DOXYCYCLINE HYCLATE. [Concomitant]
     Active Substance: DOXYCYCLINE HYCLATE
     Route: 065
     Dates: start: 20151104
  4. HYDROCORTISON [Concomitant]
     Active Substance: HYDROCORTISONE
     Route: 065
     Dates: start: 20151104
  5. GAS-X [Concomitant]
     Active Substance: DIMETHICONE
     Route: 065
     Dates: start: 20151104
  6. PANTOPRAZOLE [Concomitant]
     Active Substance: PANTOPRAZOLE
     Route: 065
     Dates: start: 20151104
  7. CREON [Concomitant]
     Active Substance: PANCRELIPASE AMYLASE\PANCRELIPASE LIPASE\PANCRELIPASE PROTEASE
     Route: 065
     Dates: start: 20151104
  8. TARCEVA [Suspect]
     Active Substance: ERLOTINIB HYDROCHLORIDE
     Route: 048
     Dates: start: 20151106, end: 20160221
  9. OXYCODONE [Concomitant]
     Active Substance: OXYCODONE
     Route: 065
     Dates: start: 20151104
  10. IMODIUM A-D [Concomitant]
     Active Substance: LOPERAMIDE HYDROCHLORIDE
     Route: 065
     Dates: start: 20151104
  11. NOVOLIN R [Concomitant]
     Active Substance: INSULIN HUMAN
     Dosage: INJ U-100
     Route: 065
     Dates: start: 20151104
  12. URSODIOL. [Concomitant]
     Active Substance: URSODIOL
     Route: 065
     Dates: start: 20151104

REACTIONS (3)
  - Rash [Not Recovered/Not Resolved]
  - Pruritus [Not Recovered/Not Resolved]
  - Malaise [Recovered/Resolved]

NARRATIVE: CASE EVENT DATE: 201510
